FAERS Safety Report 4998564-2 (Version None)
Quarter: 2006Q2

REPORT INFORMATION
  Report Type: 
  Country: None (occurrence: None)
  Receive Date: 20060508
  Receipt Date: 20060426
  Transmission Date: 20061013
  Serious: Yes (Other)
  Sender: FDA-Public Use
  Company Number: 2006P1000286

PATIENT
  Age: 66 Year
  Sex: Female

DRUGS (13)
  1. RETEPLASE (RETEPLASE) [Suspect]
     Indication: ACUTE MYOCARDIAL INFARCTION
     Dosage: X1;IV BOLUS
     Route: 040
     Dates: start: 20040402, end: 20040402
  2. REOPRO [Suspect]
     Indication: ACUTE MYOCARDIAL INFARCTION
     Dosage: X1;IVBOLUS
     Route: 040
     Dates: start: 20040402, end: 20040402
  3. TENECTEPLASE (TENECTEPLASE) [Suspect]
     Indication: ACUTE MYOCARDIAL INFARCTION
     Dates: start: 20040402
  4. ACETYLSALICYLIC ACID SRT [Concomitant]
  5. CLOPIDOGREL [Concomitant]
  6. SIMVASTATIN [Concomitant]
  7. OMEPRAZOLE [Concomitant]
  8. BISOPROLOL [Concomitant]
  9. ENAP [Concomitant]
  10. FENTANYL [Concomitant]
  11. GLYCERYL TRINITRATE [Concomitant]
  12. HEPARIN [Concomitant]
  13. FAMOTIDINE [Concomitant]

REACTIONS (4)
  - CORONARY ARTERY OCCLUSION [None]
  - HAEMATOMA [None]
  - PUNCTURE SITE HAEMORRHAGE [None]
  - THROMBOCYTOPENIA [None]
